FAERS Safety Report 9762957 (Version 1)
Quarter: 2013Q4

REPORT INFORMATION
  Report Type: Spontaneous
  Country: IT (occurrence: IT)
  Receive Date: 20131216
  Receipt Date: 20131216
  Transmission Date: 20140711
  Serious: Yes (Disabling)
  Sender: FDA-Public Use
  Company Number: PHHY2013IT146475

PATIENT
  Age: 62 Year
  Sex: Male

DRUGS (5)
  1. ZOMETA [Suspect]
     Indication: PLASMA CELL MYELOMA
     Dosage: 1 POSOLOGICAL UNIT, CYCLIC
     Route: 042
     Dates: start: 20120802, end: 20130321
  2. GEMCITABINE [Concomitant]
     Dosage: UNK UKN, UNK
     Dates: start: 201208, end: 201304
  3. METFORAL [Concomitant]
     Dosage: UNK UKN, UNK
  4. CRESTOR [Concomitant]
     Dosage: UNK UKN, UNK
  5. ESKIM [Concomitant]
     Dosage: UNK UKN, UNK

REACTIONS (3)
  - Osteonecrosis of jaw [Unknown]
  - Exposed bone in jaw [Unknown]
  - Pain in jaw [Unknown]
